FAERS Safety Report 7166566-6 (Version None)
Quarter: 2010Q4

REPORT INFORMATION
  Report Type: 
  Country: None (occurrence: None)
  Receive Date: 20101216
  Receipt Date: 20101209
  Transmission Date: 20110411
  Serious: Yes (Hospitalization, Other)
  Sender: FDA-Public Use
  Company Number: US-ABBOTT-10P-163-0690499-00

PATIENT
  Sex: Female
  Weight: 111.68 kg

DRUGS (3)
  1. HUMIRA [Suspect]
     Indication: CROHN'S DISEASE
     Route: 058
     Dates: start: 20090901
  2. NITROGLYCERIN [Suspect]
     Indication: CHEST PAIN
     Route: 060
     Dates: start: 20101201, end: 20101201
  3. LISINOPRIL [Concomitant]
     Indication: HYPERTENSION
     Route: 048

REACTIONS (6)
  - ARTERIAL SPASM [None]
  - BLOOD PRESSURE ORTHOSTATIC ABNORMAL [None]
  - CHEST PAIN [None]
  - DIZZINESS [None]
  - HEADACHE [None]
  - LOSS OF CONSCIOUSNESS [None]
